FAERS Safety Report 7998770-9 (Version None)
Quarter: 2011Q4

REPORT INFORMATION
  Report Type: 
  Country: None (occurrence: None)
  Receive Date: 20111221
  Receipt Date: 20111212
  Transmission Date: 20120403
  Serious: Yes (Life-Threatening, Hospitalization)
  Sender: FDA-Public Use
  Company Number: JP-ABBOTT-11P-087-0882334-00

PATIENT
  Age: 58 Year
  Sex: Female

DRUGS (9)
  1. FURTULON [Suspect]
     Indication: BREAST OPERATION
     Route: 048
     Dates: start: 20030228, end: 20110608
  2. FURTULON [Suspect]
     Indication: BREAST CANCER
  3. MEDROXYPROGESTERONE ACETATE [Suspect]
     Indication: BREAST CANCER
  4. GASMOTIN [Concomitant]
     Indication: PRODUCT USED FOR UNKNOWN INDICATION
     Route: 048
     Dates: start: 20050310
  5. MAGNESIUM OXIDE [Concomitant]
     Indication: PRODUCT USED FOR UNKNOWN INDICATION
     Route: 048
     Dates: start: 20030228
  6. TERAZOSIN HCL [Suspect]
     Indication: PRODUCT USED FOR UNKNOWN INDICATION
     Route: 048
     Dates: start: 20050330, end: 20110601
  7. PIOGLITAZONE [Suspect]
     Indication: DIABETES MELLITUS
     Route: 048
     Dates: start: 20060308, end: 20110601
  8. MEDROXYPROGESTERONE ACETATE [Suspect]
     Indication: BREAST OPERATION
     Route: 048
     Dates: start: 20030228, end: 20110608
  9. MUCOSTA [Concomitant]
     Indication: PRODUCT USED FOR UNKNOWN INDICATION
     Route: 048
     Dates: start: 20030228

REACTIONS (5)
  - BLADDER CANCER [None]
  - HAEMATURIA [None]
  - DIABETES MELLITUS [None]
  - RASH [None]
  - BLOOD URINE PRESENT [None]
